FAERS Safety Report 8859423 (Version 1)
Quarter: 2012Q4

REPORT INFORMATION
  Report Type: Report from Study
  Country: CA (occurrence: CA)
  Receive Date: 20121024
  Receipt Date: 20121024
  Transmission Date: 20130627
  Serious: Yes (Other)
  Sender: FDA-Public Use
  Company Number: CA-ROCHE-1138455

PATIENT
  Sex: Male
  Weight: 65.83 kg

DRUGS (9)
  1. BEVACIZUMAB [Suspect]
     Indication: GLIOBLASTOMA
     Route: 042
     Dates: start: 20120820, end: 20120906
  2. LEVETIRACETAM [Concomitant]
  3. PANTOLOC [Concomitant]
  4. ATORVASTATIN [Concomitant]
  5. ONDANSETRON [Concomitant]
  6. SENNA [Concomitant]
  7. DEXAMETHASONE [Concomitant]
  8. NEUPOGEN [Concomitant]
  9. COUMADINE [Concomitant]

REACTIONS (3)
  - No therapeutic response [Not Recovered/Not Resolved]
  - No therapeutic response [Not Recovered/Not Resolved]
  - Disease progression [Not Recovered/Not Resolved]
